FAERS Safety Report 8599025-4 (Version None)
Quarter: 2012Q3

REPORT INFORMATION
  Report Type: 
  Country: None (occurrence: None)
  Receive Date: 20120816
  Receipt Date: 20120810
  Transmission Date: 20120928
  Serious: Yes (Hospitalization)
  Sender: FDA-Public Use
  Company Number: PHHY2012RS069568

PATIENT
  Age: 55 Year
  Sex: Female

DRUGS (1)
  1. NITROFURANTOIN [Suspect]
     Indication: URINARY TRACT INFECTION
     Dosage: 100 MG, BID

REACTIONS (22)
  - SJOGREN'S SYNDROME [None]
  - HEPATOMEGALY [None]
  - DRY MOUTH [None]
  - INTERSTITIAL LUNG DISEASE [None]
  - SKIN DISCOLOURATION [None]
  - HYPERGAMMAGLOBULINAEMIA [None]
  - HYPOCAPNIA [None]
  - WEIGHT DECREASED [None]
  - ASTHENIA [None]
  - DRY EYE [None]
  - CHRONIC HEPATITIS [None]
  - NEURODERMATITIS [None]
  - COUGH [None]
  - RALES [None]
  - SPLENOMEGALY [None]
  - RASH PAPULAR [None]
  - NAUSEA [None]
  - DYSPNOEA [None]
  - PYREXIA [None]
  - JAUNDICE [None]
  - HYPOXIA [None]
  - ARTHRALGIA [None]
